FAERS Safety Report 4374422-1 (Version None)
Quarter: 2004Q2

REPORT INFORMATION
  Report Type: 
  Country: None (occurrence: None)
  Receive Date: 20040608
  Receipt Date: 20040608
  Transmission Date: 20050107
  Serious: Yes (Other)
  Sender: FDA-Public Use
  Company Number: None

PATIENT

DRUGS (1)
  1. APLISOL [Suspect]
     Indication: TUBERCULIN TEST
     Dosage: 0.1 ML X 1 INTRADERMAL
     Route: 023

REACTIONS (2)
  - PHARMACEUTICAL PRODUCT COMPLAINT [None]
  - TUBERCULIN TEST POSITIVE [None]
